FAERS Safety Report 10189052 (Version 1)
Quarter: 2014Q2

REPORT INFORMATION
  Report Type: Spontaneous
  Country: US (occurrence: None)
  Receive Date: 20140521
  Receipt Date: 20140521
  Transmission Date: 20141212
  Serious: Yes (Disabling, Other)
  Sender: FDA-Public Use
  Company Number: None

PATIENT
  Age: 35 Year
  Sex: Female
  Weight: 63.5 kg

DRUGS (2)
  1. CIPROFLOXACIN 500 MG [Suspect]
     Indication: KIDNEY INFECTION
     Route: 048
     Dates: start: 20130413, end: 20130515
  2. CIPROFLOXACIN 500 MG [Suspect]
     Indication: URINARY TRACT INFECTION
     Route: 048
     Dates: start: 20130413, end: 20130515

REACTIONS (13)
  - Dehydration [None]
  - Neuropathy peripheral [None]
  - Memory impairment [None]
  - Neuropathy peripheral [None]
  - Tendon pain [None]
  - Sensory loss [None]
  - Respiratory disorder [None]
  - Dysstasia [None]
  - Arthralgia [None]
  - Back pain [None]
  - Pain in extremity [None]
  - Pain in extremity [None]
  - Neck pain [None]
